FAERS Safety Report 5833539-2 (Version None)
Quarter: 2008Q3

REPORT INFORMATION
  Report Type: 
  Country: None (occurrence: None)
  Receive Date: 20080804
  Receipt Date: 20080804
  Transmission Date: 20090109
  Serious: Yes (Life-Threatening)
  Sender: FDA-Public Use
  Company Number: None

PATIENT
  Sex: Female
  Weight: 81.6475 kg

DRUGS (1)
  1. ZONISAMIDE [Suspect]
     Indication: ANXIETY
     Dosage: 1 TIME DAILY 100 MG 1 TIME DAILY PO
     Route: 048
     Dates: start: 20080703, end: 20080802

REACTIONS (3)
  - DERMATITIS CONTACT [None]
  - PAIN [None]
  - STEVENS-JOHNSON SYNDROME [None]
